FAERS Safety Report 5512123-4 (Version None)
Quarter: 2007Q4

REPORT INFORMATION
  Report Type: 
  Country: None (occurrence: None)
  Receive Date: 20071109
  Receipt Date: 20071030
  Transmission Date: 20080405
  Serious: Yes (Other)
  Sender: FDA-Public Use
  Company Number: GB-PFIZER INC-2007093164

PATIENT
  Age: 34 Year
  Sex: Male

DRUGS (3)
  1. LUSTRAL [Suspect]
     Indication: POST-TRAUMATIC STRESS DISORDER
     Dosage: TEXT:50MG
     Route: 048
     Dates: start: 20070801, end: 20071005
  2. LAMOTRIGINE [Concomitant]
     Dosage: TEXT:150MG
     Route: 048
     Dates: start: 20070622
  3. TOPIRAMATE [Concomitant]
     Dosage: TEXT:150MG
     Route: 048
     Dates: start: 20061110

REACTIONS (3)
  - ANXIETY [None]
  - HALLUCINATION, AUDITORY [None]
  - HALLUCINATION, VISUAL [None]
